FAERS Safety Report 7944501-8 (Version None)
Quarter: 2011Q4

REPORT INFORMATION
  Report Type: 
  Country: None (occurrence: None)
  Receive Date: 20111122
  Receipt Date: 20110826
  Transmission Date: 20120403
  Serious: Yes (Other)
  Sender: FDA-Public Use
  Company Number: PHYY2011US68626

PATIENT
  Age: 45 Year
  Sex: Female

DRUGS (14)
  1. FLUOXETINE [Concomitant]
  2. HYDROCODONE [Concomitant]
  3. DIAZEPAM [Concomitant]
  4. GILENYA [Suspect]
     Indication: MULTIPLE SCLEROSIS
     Dosage: 0.5 MG, QD, ORAL
     Route: 048
     Dates: start: 20110701, end: 20110801
  5. ALENDRONATE SODIUM [Concomitant]
  6. GABAPENTIN [Concomitant]
  7. TIZANIDINE HCL [Concomitant]
  8. ACTONEL [Concomitant]
  9. CALCIUM [Concomitant]
  10. NEURONTIN [Concomitant]
  11. METHYLPHENIDATE [Concomitant]
  12. COPAXONE [Concomitant]
  13. PROVIGIL [Concomitant]
  14. VITAMIN D [Concomitant]

REACTIONS (2)
  - VISUAL ACUITY REDUCED [None]
  - MACULAR OEDEMA [None]
